FAERS Safety Report 7365092-9 (Version None)
Quarter: 2011Q1

REPORT INFORMATION
  Report Type: 
  Country: None (occurrence: None)
  Receive Date: 20110321
  Receipt Date: 20110310
  Transmission Date: 20110831
  Serious: Yes (Hospitalization)
  Sender: FDA-Public Use
  Company Number: SE-BAXTER-2011BH006575

PATIENT
  Age: 76 Year
  Sex: Male

DRUGS (2)
  1. CASODEX [Concomitant]
     Indication: PROSTATE CANCER
     Route: 048
     Dates: end: 20110201
  2. CYCLOPHOSPHAMIDE [Suspect]
     Indication: PROSTATE CANCER
     Route: 042
     Dates: end: 20110201

REACTIONS (4)
  - ANAEMIA [None]
  - LEUKOPENIA [None]
  - SPEECH DISORDER [None]
  - PYREXIA [None]
